FAERS Safety Report 9411891 (Version 2)
Quarter: 2013Q2

REPORT INFORMATION
  Report Type: Spontaneous
  Country: US (occurrence: None)
  Receive Date: 20130424
  Receipt Date: 20130514
  Transmission Date: 20140414
  Serious: Yes (Other)
  Sender: FDA-Public Use
  Company Number: 2013-069

PATIENT
  Age: 32 Year
  Sex: Female
  Weight: 78.5 kg

DRUGS (6)
  1. FAZACLO [Suspect]
     Indication: SCHIZOPHRENIA, PARANOID TYPE
     Route: 048
     Dates: start: 201204, end: 20130302
  2. NOVAIN (OXYBUPROCAINE HYDROCHLORIDE) [Concomitant]
  3. LORAZEPAM (LORAZEPAM) [Concomitant]
  4. CELEXA [Suspect]
  5. COGENTIN (BENZATROPINE MESILATE) [Concomitant]
  6. CLOZAPINE [Suspect]
     Indication: SCHIZOPHRENIA, PARANOID TYPE
     Route: 048
     Dates: start: 201106, end: 201204

REACTIONS (4)
  - Drug level increased [None]
  - Urinary incontinence [None]
  - Drug interaction [None]
  - Antipsychotic drug level increased [None]
